FAERS Safety Report 8867570 (Version 1)
Quarter: 2012Q4

REPORT INFORMATION
  Report Type: 
  Country: US (occurrence: US)
  Receive Date: 20121025
  Receipt Date: 20121025
  Transmission Date: 20130627
  Serious: No
  Sender: FDA-Public Use
  Company Number: US-AMGEN-USASP2012017453

PATIENT
  Age: 51 Year
  Sex: Female
  Weight: 86.17 kg

DRUGS (10)
  1. ENBREL [Suspect]
     Indication: PRODUCT USED FOR UNKNOWN INDICATION
     Dosage: 50 mg, qwk
     Route: 058
  2. ORENCIA [Concomitant]
     Dosage: 250 mg, UNK
  3. METHOTREXATE [Concomitant]
     Dosage: 2.5 mg, UNK
  4. PREDNISONE [Concomitant]
     Dosage: 1 mg, UNK
  5. MOBIC [Concomitant]
     Dosage: 7.5 mg, UNK
  6. FOLIC ACID [Concomitant]
     Dosage: UNK
  7. LISINOPRIL [Concomitant]
     Dosage: 5 mg, UNK
  8. LIPITOR [Concomitant]
     Dosage: 10 mg, UNK
  9. CALCIUM [Concomitant]
     Dosage: 500 UNK, UNK
  10. MULTIVITAMIN                       /00831701/ [Concomitant]
     Dosage: UNK

REACTIONS (1)
  - Drug ineffective [Unknown]
